FAERS Safety Report 8155641-5 (Version None)
Quarter: 2012Q1

REPORT INFORMATION
  Report Type: 
  Country: None (occurrence: None)
  Receive Date: 20120222
  Receipt Date: 20120217
  Transmission Date: 20120608
  Serious: Yes (Life-Threatening, Hospitalization)
  Sender: FDA-Public Use
  Company Number: US-BAYER-2011-077992

PATIENT
  Age: 22 Year
  Sex: Female

DRUGS (6)
  1. DROSPIRENONE AND ETHINYL ESTRADIOL [Suspect]
  2. IBUPROFEN [Concomitant]
     Dosage: 800 MG, UNK
     Route: 048
     Dates: start: 20071002, end: 20100214
  3. YASMIN [Suspect]
  4. PENICILLIN VK [Concomitant]
     Dosage: 500 MG, UNK
     Route: 048
     Dates: start: 20090806
  5. OXYCODONE HCL [Concomitant]
     Dosage: 5-500 MG, UNK
     Route: 048
     Dates: start: 20090806
  6. YAZ [Suspect]

REACTIONS (6)
  - THROMBOSIS [None]
  - ANXIETY [None]
  - ANHEDONIA [None]
  - INJURY [None]
  - PULMONARY EMBOLISM [None]
  - PAIN [None]
